FAERS Safety Report 16391171 (Version 1)
Quarter: 2019Q2

REPORT INFORMATION
  Report Type: Report from Study
  Country: None (occurrence: US)
  Receive Date: 20190604
  Receipt Date: 20190604
  Transmission Date: 20190711
  Serious: Yes (Hospitalization)
  Sender: FDA-Public Use
  Company Number: US-ABBVIE-19P-163-2799668-00

PATIENT
  Sex: Female

DRUGS (1)
  1. ORILISSA [Suspect]
     Active Substance: ELAGOLIX SODIUM
     Indication: PRODUCT USED FOR UNKNOWN INDICATION
     Route: 048

REACTIONS (5)
  - Inappropriate schedule of product administration [Not Recovered/Not Resolved]
  - Muscle spasms [Recovered/Resolved]
  - Product dose omission [Not Recovered/Not Resolved]
  - Nausea [Recovered/Resolved]
  - Pain [Not Recovered/Not Resolved]
